FAERS Safety Report 10429963 (Version 1)
Quarter: 2014Q3

REPORT INFORMATION
  Report Type: Spontaneous
  Country: US (occurrence: None)
  Receive Date: 20140902
  Receipt Date: 20140902
  Transmission Date: 20150326
  Serious: Yes (Other)
  Sender: FDA-Public Use
  Company Number: None

PATIENT
  Age: 76 Year
  Sex: Male
  Weight: 79.38 kg

DRUGS (8)
  1. CARVEDILOL. [Suspect]
     Active Substance: CARVEDILOL
     Indication: MYOCARDIAL INFARCTION
     Dosage: 1  PILL  BID ORAL
     Route: 048
     Dates: start: 20140415, end: 20140829
  2. FOSINOPRIL [Concomitant]
     Active Substance: FOSINOPRIL
  3. SIMVASTATIN. [Concomitant]
     Active Substance: SIMVASTATIN
  4. LEVIMIR INSULIN [Concomitant]
  5. JANUVIA [Concomitant]
     Active Substance: SITAGLIPTIN PHOSPHATE
  6. ASPIRIN. [Concomitant]
     Active Substance: ASPIRIN
  7. FUROSAMIDE [Concomitant]
  8. CARVEDILOL. [Suspect]
     Active Substance: CARVEDILOL
     Indication: HYPERTENSION
     Dosage: 1  PILL  BID ORAL
     Route: 048
     Dates: start: 20140415, end: 20140829

REACTIONS (3)
  - Heart rate increased [None]
  - Product quality issue [None]
  - Product substitution issue [None]

NARRATIVE: CASE EVENT DATE: 20140318
